FAERS Safety Report 16626350 (Version 3)
Quarter: 2019Q3

REPORT INFORMATION
  Report Type: Spontaneous
  Country: US (occurrence: US)
  Receive Date: 20190724
  Receipt Date: 20190912
  Transmission Date: 20191004
  Serious: Yes (Hospitalization)
  Sender: FDA-Public Use
  Company Number: US-CELGENEUS-USA-20190707004

PATIENT
  Age: 12 Year
  Sex: Female

DRUGS (14)
  1. CRISABOROLE [Concomitant]
     Active Substance: CRISABOROLE
     Indication: ECZEMA
     Dosage: 4 PERCENT
     Route: 061
     Dates: start: 20190516
  2. CYTARABINE. [Concomitant]
     Active Substance: CYTARABINE
     Indication: ACUTE MYELOID LEUKAEMIA
     Route: 065
     Dates: start: 201812, end: 201902
  3. CYTARABINE. [Concomitant]
     Active Substance: CYTARABINE
     Route: 065
     Dates: start: 201902
  4. VANCOMYCIN [Concomitant]
     Active Substance: VANCOMYCIN
     Indication: BACILLUS BACTERAEMIA
     Route: 065
  5. MEROPENEM. [Concomitant]
     Active Substance: MEROPENEM
     Indication: PRODUCT USED FOR UNKNOWN INDICATION
     Route: 041
  6. AZACITIDINE. [Suspect]
     Active Substance: AZACITIDINE
     Indication: ACUTE MYELOID LEUKAEMIA
     Route: 048
     Dates: start: 20190520, end: 20190524
  7. VENETOCLAX. [Suspect]
     Active Substance: VENETOCLAX
     Indication: ACUTE MYELOID LEUKAEMIA
     Dosage: 7.5 MILLIGRAM
     Route: 048
     Dates: start: 20190513, end: 20190513
  8. VANCOMYCIN [Concomitant]
     Active Substance: VANCOMYCIN
     Route: 041
  9. FLUDARABINE [Concomitant]
     Active Substance: FLUDARABINE PHOSPHATE
     Indication: ACUTE MYELOID LEUKAEMIA
     Route: 065
     Dates: start: 201812, end: 201902
  10. FLUDARABINE [Concomitant]
     Active Substance: FLUDARABINE PHOSPHATE
     Route: 065
     Dates: start: 201902
  11. POSACONAZOLE [Concomitant]
     Active Substance: POSACONAZOLE
     Indication: FUNGAL INFECTION
     Dosage: 300 MILLIGRAM
     Route: 048
     Dates: start: 20190318, end: 20190416
  12. CYTARABINE. [Concomitant]
     Active Substance: CYTARABINE
     Route: 065
     Dates: start: 20190507, end: 20190507
  13. VENETOCLAX. [Suspect]
     Active Substance: VENETOCLAX
     Dosage: 15 MILLIGRAM
     Route: 048
     Dates: start: 20190514, end: 20190514
  14. VENETOCLAX. [Suspect]
     Active Substance: VENETOCLAX
     Dosage: 30 MILLIGRAM
     Route: 048
     Dates: start: 20190515, end: 20190609

REACTIONS (2)
  - Febrile neutropenia [Recovered/Resolved]
  - Febrile neutropenia [Recovered/Resolved]

NARRATIVE: CASE EVENT DATE: 20190625
